FAERS Safety Report 6416104-8 (Version None)
Quarter: 2009Q4

REPORT INFORMATION
  Report Type: 
  Country: None (occurrence: None)
  Receive Date: 20091027
  Receipt Date: 20091012
  Transmission Date: 20100525
  Serious: Yes (Hospitalization, Other)
  Sender: FDA-Public Use
  Company Number: US-MERCK-0910USA03082

PATIENT
  Age: 13 Year
  Sex: Female

DRUGS (3)
  1. PRINIVIL [Suspect]
     Route: 048
  2. NICORANDIL [Suspect]
     Route: 065
  3. METOCLOPRAMIDE [Suspect]
     Route: 065

REACTIONS (8)
  - BACK PAIN [None]
  - DIZZINESS [None]
  - HYPOTENSION [None]
  - INTENTIONAL OVERDOSE [None]
  - MYOCARDIAL ISCHAEMIA [None]
  - NAUSEA [None]
  - SUICIDE ATTEMPT [None]
  - VENTRICULAR HYPOKINESIA [None]
